FAERS Safety Report 14593824 (Version 1)
Quarter: 2018Q1

REPORT INFORMATION
  Report Type: Other
  Country: GB (occurrence: GB)
  Receive Date: 20180302
  Receipt Date: 20180302
  Transmission Date: 20180509
  Serious: Yes (Other)
  Sender: FDA-Public Use
  Company Number: GB-GE HEALTHCARE LIFE SCIENCES-2018CSU000857

PATIENT

DRUGS (1)
  1. OMNIPAQUE [Suspect]
     Active Substance: IOHEXOL
     Indication: PRODUCT USED FOR UNKNOWN INDICATION
     Dosage: 100 ML, SINGLE
     Route: 042

REACTIONS (5)
  - Pollakiuria [Unknown]
  - Malaise [Unknown]
  - Blood urine present [Unknown]
  - Discomfort [Unknown]
  - Micturition urgency [Unknown]

NARRATIVE: CASE EVENT DATE: 20171101
